FAERS Safety Report 8593414-X (Version None)
Quarter: 2012Q3

REPORT INFORMATION
  Report Type: 
  Country: None (occurrence: None)
  Receive Date: 20120814
  Receipt Date: 20120806
  Transmission Date: 20120928
  Serious: Yes (Other)
  Sender: FDA-Public Use
  Company Number: AU-UCBSA-063254

PATIENT
  Age: 12 Month
  Sex: Male

DRUGS (4)
  1. VIMPAT [Suspect]
     Route: 064
     Dates: end: 20110101
  2. TOPIRAMATE [Suspect]
     Route: 064
     Dates: end: 20110101
  3. CLONAZEPAM [Suspect]
     Route: 064
     Dates: end: 20110101
  4. LAMOTRIGINE [Suspect]
     Route: 064
     Dates: end: 20110101

REACTIONS (2)
  - MENTAL DISABILITY [None]
  - FOETAL EXPOSURE DURING PREGNANCY [None]
